APPROVED DRUG PRODUCT: UROCIT-K
Active Ingredient: POTASSIUM CITRATE
Strength: 5MEQ
Dosage Form/Route: TABLET, EXTENDED RELEASE;ORAL
Application: N019071 | Product #001 | TE Code: AB
Applicant: MISSION PHARMACAL CO
Approved: Aug 30, 1985 | RLD: Yes | RS: No | Type: RX